FAERS Safety Report 9380646 (Version 2)
Quarter: 2013Q3

REPORT INFORMATION
  Report Type: Spontaneous
  Country: US (occurrence: None)
  Receive Date: 20130628
  Receipt Date: 20130924
  Transmission Date: 20140515
  Serious: Yes (Other)
  Sender: FDA-Public Use
  Company Number: 2013SA063205

PATIENT
  Age: 32 Year
  Sex: Female
  Weight: 77 kg

DRUGS (1)
  1. ICY HOT NO MESS [Suspect]
     Indication: BACK PAIN
     Dates: start: 20130617

REACTIONS (2)
  - Thermal burn [None]
  - Rash [None]
